FAERS Safety Report 6940380-6 (Version None)
Quarter: 2010Q3

REPORT INFORMATION
  Report Type: 
  Country: None (occurrence: None)
  Receive Date: 20100825
  Receipt Date: 20100727
  Transmission Date: 20110219
  Serious: Yes (Other)
  Sender: FDA-Public Use
  Company Number: GB-WYE-G06361310

PATIENT
  Sex: Male
  Weight: 98 kg

DRUGS (2)
  1. REFACTO [Suspect]
     Indication: PROPHYLAXIS
     Dosage: 1000 IU, FREQUENCY UNKNOWN
     Route: 042
  2. CODEINE PHOSPHATE/PARACETAMOL [Concomitant]
     Dosage: 1-2 DOSE FORMS AS REQUIRED
     Route: 048

REACTIONS (2)
  - DRUG DOSE OMISSION [None]
  - PRODUCT QUALITY ISSUE [None]
